FAERS Safety Report 9449652 (Version 2)
Quarter: 2013Q3

REPORT INFORMATION
  Report Type: Spontaneous
  Country: US (occurrence: US)
  Receive Date: 20130809
  Receipt Date: 20130829
  Transmission Date: 20140515
  Serious: Yes (Death)
  Sender: FDA-Public Use
  Company Number: US-PFIZER INC-2013230707

PATIENT
  Age: 79 Year
  Sex: Male

DRUGS (3)
  1. CELEBREX [Suspect]
     Dosage: 200 MG, 1X/DAY
  2. ELIQUIS [Suspect]
     Dosage: 5 MG, 2X/DAY
  3. COUMADIN [Suspect]
     Dosage: UNK

REACTIONS (1)
  - Gastrointestinal haemorrhage [Fatal]
